FAERS Safety Report 8014384-9 (Version None)
Quarter: 2011Q4

REPORT INFORMATION
  Report Type: 
  Country: None (occurrence: None)
  Receive Date: 20111229
  Receipt Date: 20111219
  Transmission Date: 20120403
  Serious: Yes (Hospitalization, Disabling, Other)
  Sender: FDA-Public Use
  Company Number: PHHY2011US68674

PATIENT
  Sex: Female
  Weight: 65.306 kg

DRUGS (21)
  1. VENLAFAXINE [Concomitant]
     Dosage: 100 MG, BID
  2. EFFEXOR [Concomitant]
     Dosage: 75 MG, UNK
     Route: 048
  3. ALBUTEROL [Concomitant]
     Dosage: UNK OT, PRN
  4. BACLOFEN [Concomitant]
     Dosage: 10 MG, DAILY AT BEDTIME
     Route: 048
  5. MORPHINE [Concomitant]
     Dosage: UNK UKN, UNK
  6. GILENYA [Suspect]
     Indication: MULTIPLE SCLEROSIS RELAPSE
     Dosage: 0.5 MG, QD
     Route: 048
     Dates: start: 20110426, end: 20110815
  7. EFFEXOR [Concomitant]
     Indication: FIBROMYALGIA
     Dosage: 100 MG, BID
  8. OMEPRAZOLE [Concomitant]
     Dosage: 20 MG, BID
  9. GABAPENTIN [Concomitant]
     Dosage: 100 MG, AT BED TIME
     Route: 048
  10. GILENYA [Suspect]
     Dosage: 0.5 MG, QD
  11. NEURONTIN [Concomitant]
     Indication: PAIN IN EXTREMITY
     Dosage: 100 MG, TID
     Route: 048
  12. PROMETHAZINE [Concomitant]
     Dosage: UNK UKN, UNK
  13. ASACOL [Concomitant]
     Dosage: UNK UKN, UNK
  14. ZOFRAN [Concomitant]
     Dosage: UNK UKN, UNK
  15. FOLIC ACID [Concomitant]
     Dosage: UNK UKN, UNK
  16. LUNESTA [Concomitant]
     Dosage: 2 MG, QHS
     Route: 048
  17. VITAMIN D [Concomitant]
  18. ESTRACE [Concomitant]
     Dosage: 1 MG, DAILY
  19. LUNESTA [Concomitant]
     Dosage: 1 DF, AT BEDTIME
  20. MARIJUANA [Concomitant]
  21. VITAMIN B COMPLEX CAP [Concomitant]

REACTIONS (27)
  - COLITIS ULCERATIVE [None]
  - ANAEMIA [None]
  - ENTERITIS [None]
  - URINARY TRACT INFECTION [None]
  - PARAESTHESIA [None]
  - MALAISE [None]
  - ABDOMINAL TENDERNESS [None]
  - HAEMATOCHEZIA [None]
  - C-REACTIVE PROTEIN INCREASED [None]
  - RESTLESS LEGS SYNDROME [None]
  - RECTAL HAEMORRHAGE [None]
  - GALLBLADDER ENLARGEMENT [None]
  - CHILLS [None]
  - ABDOMINAL PAIN [None]
  - LEUKOPENIA [None]
  - DIARRHOEA [None]
  - DEHYDRATION [None]
  - BODY TEMPERATURE INCREASED [None]
  - GASTROINTESTINAL INFECTION [None]
  - PAIN [None]
  - PRURITUS [None]
  - LYMPHOCYTE COUNT DECREASED [None]
  - NAUSEA [None]
  - MONOCYTOSIS [None]
  - PUS IN STOOL [None]
  - GASTROENTERITIS [None]
  - DIARRHOEA HAEMORRHAGIC [None]
